FAERS Safety Report 12645253 (Version 2)
Quarter: 2016Q3

REPORT INFORMATION
  Report Type: Report from Study
  Country: UA (occurrence: UA)
  Receive Date: 20160811
  Receipt Date: 20160923
  Transmission Date: 20161109
  Serious: Yes (Other)
  Sender: FDA-Public Use
  Company Number: UA-PFIZER INC-2016367517

PATIENT
  Age: 63 Year
  Sex: Female
  Weight: 82.9 kg

DRUGS (12)
  1. ZOFRAN [Concomitant]
     Active Substance: ONDANSETRON HYDROCHLORIDE
     Indication: PREMEDICATION
     Dosage: 8 MG, CYCLIC (EVERY 21 DAYS)
     Route: 042
     Dates: start: 20160603
  2. PACLITAXEL. [Suspect]
     Active Substance: PACLITAXEL
     Indication: NON-SMALL CELL LUNG CANCER
     Dosage: 388 MG, EVERY 21 DAYS
     Route: 042
     Dates: start: 20160219
  3. NACL 0.9% [Concomitant]
     Active Substance: SODIUM CHLORIDE
     Indication: PREMEDICATION
     Dosage: 1010 ML, CYCLIC (EVERY 21 DAYS)
     Route: 042
     Dates: start: 20160219
  4. DIMEDROL [Concomitant]
     Active Substance: DIPHENHYDRAMINE
     Indication: PREMEDICATION
     Dosage: 50 MG, CYCLIC (EVERY 21 DAYS)
     Route: 042
     Dates: start: 20160603
  5. BLINDED BEVACIZUMAB [Suspect]
     Active Substance: BEVACIZUMAB
     Indication: NON-SMALL CELL LUNG CANCER
     Dosage: 1243 MG, EVERY 21 DAYS
     Route: 042
     Dates: start: 20160219
  6. BLINDED BEVACIZUMAB [Suspect]
     Active Substance: BEVACIZUMAB
     Indication: NON-SMALL CELL LUNG CANCER
     Dosage: 1243 MG, EVERY 21 DAYS
     Route: 042
     Dates: start: 20160219
  7. DEXAMETHASONE. [Concomitant]
     Active Substance: DEXAMETHASONE
     Indication: PREMEDICATION
     Dosage: 20 MG, CYCLIC (EVERY 21 DAYS)
     Route: 048
     Dates: start: 20160603
  8. BLINDED PF-06439535 [Suspect]
     Active Substance: INVESTIGATIONAL PRODUCT
     Indication: NON-SMALL CELL LUNG CANCER
     Dosage: 1243 MG, EVERY 21 DAYS
     Route: 042
     Dates: start: 20160219
  9. BLINDED PF-06439535 [Suspect]
     Active Substance: INVESTIGATIONAL PRODUCT
     Indication: NON-SMALL CELL LUNG CANCER
     Dosage: 1243 MG, EVERY 21 DAYS
     Route: 042
     Dates: start: 20160219
  10. CARBOPLATIN. [Suspect]
     Active Substance: CARBOPLATIN
     Indication: NON-SMALL CELL LUNG CANCER
     Dosage: 539 MG, EVERY 21 DAYS
     Route: 042
     Dates: start: 20160219
  11. RANITIDINE. [Concomitant]
     Active Substance: RANITIDINE
     Indication: PREMEDICATION
     Dosage: 50 MG, CYCLIC (EVERY 21 DAYS)
     Route: 042
     Dates: start: 20160603
  12. DEXAMETHASONE. [Concomitant]
     Active Substance: DEXAMETHASONE
     Indication: PREMEDICATION
     Dosage: 20 MG, CYCLIC (EVERY 21 DAYS)
     Route: 030
     Dates: start: 20160603

REACTIONS (2)
  - Alanine aminotransferase increased [Recovered/Resolved]
  - Blood bilirubin increased [Recovered/Resolved]

NARRATIVE: CASE EVENT DATE: 20160603
